FAERS Safety Report 16094310 (Version 1)
Quarter: 2019Q2

REPORT INFORMATION
  Report Type: Spontaneous
  Country: US (occurrence: US)
  Receive Date: 20190319
  Receipt Date: 20190319
  Transmission Date: 20190711
  Serious: Yes (Hospitalization, Disabling)
  Sender: FDA-Public Use
  Company Number: None

PATIENT
  Age: 78 Year
  Sex: Female
  Weight: 72.9 kg

DRUGS (19)
  1. METHOTREXATE. [Concomitant]
     Active Substance: METHOTREXATE
  2. OMEPRAZOLE. [Concomitant]
     Active Substance: OMEPRAZOLE
  3. FLOVENT [Concomitant]
     Active Substance: FLUTICASONE PROPIONATE
  4. ZOLPIDEM [Concomitant]
     Active Substance: ZOLPIDEM\ZOLPIDEM TARTRATE
  5. ARADS EYE VITAMINS [Concomitant]
  6. ZYRTEC [Concomitant]
     Active Substance: CETIRIZINE HYDROCHLORIDE
  7. VITAMIN C [Concomitant]
     Active Substance: ASCORBIC ACID
  8. VITAMIN B [Concomitant]
     Active Substance: VITAMIN B
  9. MAGNESIUM [Concomitant]
     Active Substance: MAGNESIUM
  10. NORCO [Suspect]
     Active Substance: ACETAMINOPHEN\HYDROCODONE BITARTRATE
  11. LEVALBUTERAOL [Concomitant]
  12. FOLIC ACID. [Concomitant]
     Active Substance: FOLIC ACID
  13. VALIUM [Suspect]
     Active Substance: DIAZEPAM
     Indication: MUSCLE SPASMS
     Dosage: ?          OTHER FREQUENCY:AS GIVEN BY NURSES;?
     Route: 048
     Dates: start: 20171031, end: 20171112
  14. PREDNISONE. [Concomitant]
     Active Substance: PREDNISONE
  15. INCRUSE ELLIPTA [Concomitant]
     Active Substance: UMECLIDINIUM BROMIDE
  16. ACETAMINAPHEN [Concomitant]
  17. ROSUVASTATIN. [Concomitant]
     Active Substance: ROSUVASTATIN
  18. PLAVIX [Concomitant]
     Active Substance: CLOPIDOGREL BISULFATE
  19. LIDOCAIN [Concomitant]
     Active Substance: LIDOCAINE

REACTIONS (12)
  - Anaemia [None]
  - Drug ineffective [None]
  - Amnesia [None]
  - Gastrointestinal disorder [None]
  - Dysarthria [None]
  - Asthenia [None]
  - Pulmonary function test decreased [None]
  - Somnolence [None]
  - Dyspnoea [None]
  - Hepatic enzyme increased [None]
  - Small intestinal haemorrhage [None]
  - Ventricular extrasystoles [None]

NARRATIVE: CASE EVENT DATE: 20171031
